FAERS Safety Report 5638065-1 (Version None)
Quarter: 2008Q1

REPORT INFORMATION
  Report Type: 
  Country: None (occurrence: None)
  Receive Date: 20080221
  Receipt Date: 20080215
  Transmission Date: 20080703
  Serious: Yes (Other)
  Sender: FDA-Public Use
  Company Number: 2008SP001285

PATIENT
  Age: 32 Year
  Sex: Female
  Weight: 68.9467 kg

DRUGS (3)
  1. PEG-INTRON [Suspect]
     Indication: HEPATITIS C
     Dosage: SC
     Route: 058
     Dates: start: 20071121, end: 20080101
  2. RIBASPHERE [Suspect]
     Indication: HEPATITIS C
     Dosage: PO
     Route: 048
     Dates: start: 20071121, end: 20080101
  3. COUMADIN [Suspect]
     Indication: DRUG USE FOR UNKNOWN INDICATION
     Dosage: 10 MG; PO
     Route: 048

REACTIONS (7)
  - ANAEMIA [None]
  - FATIGUE [None]
  - GINGIVAL BLEEDING [None]
  - HAEMATURIA [None]
  - HAEMORRHAGIC OVARIAN CYST [None]
  - INTERNATIONAL NORMALISED RATIO INCREASED [None]
  - OVARIAN CANCER [None]
